FAERS Safety Report 9571471 (Version 2)
Quarter: 2013Q4

REPORT INFORMATION
  Report Type: Report from Study
  Country: US (occurrence: US)
  Receive Date: 20131001
  Receipt Date: 20131001
  Transmission Date: 20140711
  Serious: Yes (Other)
  Sender: FDA-Public Use
  Company Number: US-JNJFOC-20130812005

PATIENT
  Age: 21 Year
  Sex: Male
  Weight: 70.31 kg

DRUGS (3)
  1. REMICADE [Suspect]
     Indication: CROHN^S DISEASE
     Route: 042
     Dates: start: 20130109, end: 2013
  2. REMICADE [Suspect]
     Indication: CROHN^S DISEASE
     Route: 042
     Dates: start: 2013
  3. DEPAKOTE [Concomitant]
     Route: 065
     Dates: start: 20130408

REACTIONS (3)
  - Drug ineffective [Not Recovered/Not Resolved]
  - Small intestinal stenosis [Unknown]
  - Crohn^s disease [Unknown]
